FAERS Safety Report 7165611-1 (Version None)
Quarter: 2010Q4

REPORT INFORMATION
  Report Type: 
  Country: None (occurrence: None)
  Receive Date: 20101215
  Receipt Date: 20091229
  Transmission Date: 20110411
  Serious: No
  Sender: FDA-Public Use
  Company Number: US-AMGEN-QUU382895

PATIENT

DRUGS (2)
  1. ENBREL [Suspect]
     Indication: RHEUMATOID ARTHRITIS
     Dosage: 50 MG, QWK
     Route: 058
  2. PREDNISONE [Concomitant]

REACTIONS (7)
  - ALOPECIA [None]
  - ASTHENIA [None]
  - HEART RATE INCREASED [None]
  - IRON DEFICIENCY ANAEMIA [None]
  - RED BLOOD CELL MORPHOLOGY ABNORMAL [None]
  - RHEUMATOID ARTHRITIS [None]
  - WEIGHT DECREASED [None]
